FAERS Safety Report 6250592-5 (Version None)
Quarter: 2009Q2

REPORT INFORMATION
  Report Type: 
  Country: None (occurrence: None)
  Receive Date: 20090626
  Receipt Date: 20090612
  Transmission Date: 20091009
  Serious: Yes (Other)
  Sender: FDA-Public Use
  Company Number: 8046980

PATIENT
  Sex: Female

DRUGS (3)
  1. XYZAL [Suspect]
     Dates: start: 20090101, end: 20090608
  2. XYZAL [Suspect]
     Dates: start: 20090611, end: 20090612
  3. BRUFEN /00109201/ [Concomitant]

REACTIONS (5)
  - CONTUSION [None]
  - FALL [None]
  - MYALGIA [None]
  - UNRESPONSIVE TO STIMULI [None]
  - URINARY INCONTINENCE [None]
